FAERS Safety Report 9264373 (Version 1)
Quarter: 2013Q2

REPORT INFORMATION
  Report Type: Spontaneous
  Country: TH (occurrence: TH)
  Receive Date: 20130430
  Receipt Date: 20130430
  Transmission Date: 20140414
  Serious: Yes (Death, Hospitalization)
  Sender: FDA-Public Use
  Company Number: TH-BAXTER-2013BAX015244

PATIENT
  Sex: Male

DRUGS (2)
  1. DIANEAL LOW CALCIUM (2.5 PERCENT MEQ/L) PERITONEAL DIALYSIS SOL WITH 1 [Suspect]
     Indication: PERITONEAL DIALYSIS
     Route: 033
     Dates: start: 20110221, end: 20130412
  2. DIANEAL LOW CALCIUM (2.5 PERCENT MEQ/L) PERITONEAL DIALYSIS SOLUTION W [Suspect]
     Indication: PERITONEAL DIALYSIS
     Route: 033
     Dates: start: 20110221, end: 20130412

REACTIONS (1)
  - Cerebrovascular disorder [Fatal]
